FAERS Safety Report 9379410 (Version 1)
Quarter: 2013Q3

REPORT INFORMATION
  Report Type: Spontaneous
  Country: BR (occurrence: BR)
  Receive Date: 20130702
  Receipt Date: 20130702
  Transmission Date: 20140515
  Serious: Yes (Other)
  Sender: FDA-Public Use
  Company Number: BR-AMGEN-BRASP2012023471

PATIENT
  Age: 28 Year
  Sex: Female
  Weight: 52 kg

DRUGS (8)
  1. ENBREL [Suspect]
     Indication: RHEUMATOID ARTHRITIS
     Dosage: 50 MG, 1X/WEEK
     Route: 058
     Dates: start: 201203
  2. ARAVA [Concomitant]
     Indication: RHEUMATOID ARTHRITIS
     Dosage: 20 MG, UNK
     Dates: start: 2012
  3. PRELONE [Concomitant]
     Indication: RHEUMATOID ARTHRITIS
     Dosage: 5 MG, UNK
  4. ARCOXIA [Concomitant]
     Indication: RHEUMATOID ARTHRITIS
     Dosage: 60 MG, UNK
     Dates: start: 2010
  5. AMITRIPTYLINE [Concomitant]
     Indication: MIGRAINE
     Dosage: UNK
     Dates: start: 2004
  6. HYDROXYCHLOROQUINE [Concomitant]
     Indication: RHEUMATOID ARTHRITIS
     Dosage: UNK
     Dates: start: 2008
  7. CHLOROQUINE [Concomitant]
     Indication: ARTHRITIS
     Dosage: UNK
  8. MIRENA [Concomitant]
     Dosage: UNK
     Dates: start: 2010

REACTIONS (12)
  - Immune system disorder [Recovered/Resolved]
  - Pityriasis rosea [Recovered/Resolved]
  - Skin disorder [Recovered/Resolved]
  - Menstruation normal [Not Recovered/Not Resolved]
  - Therapeutic response unexpected [Not Recovered/Not Resolved]
  - Papilloma viral infection [Recovered/Resolved]
  - Back pain [Recovered/Resolved]
  - Injection site induration [Recovered/Resolved]
  - Injection site swelling [Recovered/Resolved]
  - Application site pruritus [Recovered/Resolved]
  - Injection site haematoma [Recovered/Resolved]
  - Application site erythema [Recovered/Resolved]
